FAERS Safety Report 11348757 (Version 1)
Quarter: 2015Q3

REPORT INFORMATION
  Report Type: Spontaneous
  Country: FR (occurrence: FR)
  Receive Date: 20150806
  Receipt Date: 20150806
  Transmission Date: 20151125
  Serious: Yes (Other)
  Sender: FDA-Public Use
  Company Number: FR-GILEAD-2015-0165392

PATIENT

DRUGS (1)
  1. EVIPLERA [Suspect]
     Active Substance: EMTRICITABINE\RILPIVIRINE\TENOFOVIR DISOPROXIL FUMARATE
     Indication: PRODUCT USED FOR UNKNOWN INDICATION
     Dosage: UNK
     Route: 048
     Dates: start: 201209

REACTIONS (6)
  - Stress [Unknown]
  - Suffocation feeling [Unknown]
  - Product difficult to swallow [Unknown]
  - Treatment noncompliance [Unknown]
  - Product size issue [Unknown]
  - Drug dose omission [Unknown]
